FAERS Safety Report 24983404 (Version 4)
Quarter: 2025Q2

REPORT INFORMATION
  Report Type: Spontaneous
  Country: US (occurrence: US)
  Receive Date: 20250219
  Receipt Date: 20250401
  Transmission Date: 20250716
  Serious: No
  Sender: VIIV
  Company Number: US-VIIV HEALTHCARE-US2025AMR019662

PATIENT
  Sex: Male

DRUGS (2)
  1. RUKOBIA [Suspect]
     Active Substance: FOSTEMSAVIR TROMETHAMINE
     Indication: HIV infection
     Dosage: 600 MG, BID
     Dates: start: 2020
  2. FOSTEMSAVIR [Concomitant]
     Active Substance: FOSTEMSAVIR
     Indication: HIV infection
     Dates: start: 2016, end: 2020

REACTIONS (3)
  - Gout [Recovered/Resolved]
  - Vitreous floaters [Recovered/Resolved]
  - Photopsia [Recovered/Resolved]
